FAERS Safety Report 8967850 (Version 1)
Quarter: 2012Q4

REPORT INFORMATION
  Report Type: Spontaneous
  Country: US (occurrence: None)
  Receive Date: 20121213
  Receipt Date: 20121213
  Transmission Date: 20130627
  Serious: Yes (Hospitalization)
  Sender: FDA-Public Use
  Company Number: None

PATIENT
  Age: 63 Year
  Sex: Female
  Weight: 60 kg

DRUGS (9)
  1. OXALIPLATIN [Suspect]
     Indication: COLON CANCER STAGE IV
     Dosage: 170mg  IV
     Route: 042
     Dates: start: 20121107, end: 20121205
  2. PALONSETRON [Concomitant]
  3. MAGNESIUM SULFATE [Concomitant]
  4. CALCIUM GLUCONATE [Concomitant]
  5. DECADRON [Concomitant]
  6. BENADRYL [Concomitant]
  7. TYLENOL [Concomitant]
  8. AVASTIN [Concomitant]
  9. LEUCOVORIN [Concomitant]

REACTIONS (7)
  - Dizziness [None]
  - Somnolence [None]
  - Blood pressure increased [None]
  - Lacrimation increased [None]
  - Visual impairment [None]
  - Tardive dyskinesia [None]
  - No therapeutic response [None]
